FAERS Safety Report 10654467 (Version 1)
Quarter: 2014Q4

REPORT INFORMATION
  Report Type: Spontaneous
  Country: US (occurrence: None)
  Receive Date: 20141215
  Receipt Date: 20141215
  Transmission Date: 20150529
  Serious: Yes (Disabling)
  Sender: FDA-Public Use
  Company Number: None

PATIENT
  Age: 38 Year
  Sex: Female
  Weight: 58.51 kg

DRUGS (1)
  1. MIRENA [Suspect]
     Active Substance: LEVONORGESTREL

REACTIONS (12)
  - Muscle twitching [None]
  - Nervousness [None]
  - Anxiety [None]
  - Feeling abnormal [None]
  - Muscular weakness [None]
  - Pain in extremity [None]
  - Mobility decreased [None]
  - Arthralgia [None]
  - Depressed mood [None]
  - Pain [None]
  - Disturbance in attention [None]
  - Myalgia [None]

NARRATIVE: CASE EVENT DATE: 20141110
